FAERS Safety Report 11754105 (Version 1)
Quarter: 2015Q4

REPORT INFORMATION
  Report Type: Spontaneous
  Country: DE (occurrence: DE)
  Receive Date: 20151119
  Receipt Date: 20151119
  Transmission Date: 20160304
  Serious: Yes (Hospitalization)
  Sender: FDA-Public Use
  Company Number: DE-JNJFOC-20151110341

PATIENT
  Age: 18 Year
  Sex: Female

DRUGS (4)
  1. HALOPERIDOL. [Suspect]
     Active Substance: HALOPERIDOL
     Indication: SUICIDAL IDEATION
     Route: 048
     Dates: start: 20150804, end: 20150805
  2. HALOPERIDOL. [Suspect]
     Active Substance: HALOPERIDOL
     Indication: SUICIDAL IDEATION
     Route: 048
     Dates: start: 20150807, end: 20150808
  3. HALOPERIDOL. [Suspect]
     Active Substance: HALOPERIDOL
     Indication: SUICIDAL IDEATION
     Route: 048
     Dates: start: 20150809, end: 20150812
  4. HALOPERIDOL. [Suspect]
     Active Substance: HALOPERIDOL
     Indication: SUICIDAL IDEATION
     Route: 048
     Dates: start: 20150806

REACTIONS (7)
  - Muscle rigidity [Recovered/Resolved]
  - Hypokinesia [Recovered/Resolved]
  - Hypertonia [Recovered/Resolved]
  - Off label use [Unknown]
  - Dyskinesia [Recovered/Resolved]
  - Product use issue [Unknown]
  - Suicidal ideation [Recovering/Resolving]

NARRATIVE: CASE EVENT DATE: 20150804
